FAERS Safety Report 18852943 (Version 2)
Quarter: 2021Q1

REPORT INFORMATION
  Report Type: Spontaneous
  Country: JP (occurrence: JP)
  Receive Date: 20210205
  Receipt Date: 20210322
  Transmission Date: 20210420
  Serious: Yes (Other)
  Sender: FDA-Public Use
  Company Number: JP-PFIZER INC-2021096212

PATIENT
  Age: 32 Year
  Sex: Female
  Weight: 80 kg

DRUGS (4)
  1. JZOLOFT [Suspect]
     Active Substance: SERTRALINE HYDROCHLORIDE
     Indication: DEPRESSION
     Dosage: UNK
     Route: 048
     Dates: start: 2011
  2. YOKUKANSAN [Concomitant]
     Active Substance: HERBALS
     Dosage: 2.5 G, 1X/DAY AFTER SUPPER
     Route: 048
     Dates: start: 20200617, end: 20201017
  3. JZOLOFT [Suspect]
     Active Substance: SERTRALINE HYDROCHLORIDE
     Dosage: 25 MG, 1X/DAY AFTER SUPPER
     Route: 048
     Dates: start: 20200617
  4. ELENTAL [Concomitant]
     Active Substance: AMINO ACIDS\CARBOHYDRATES\MINERALS\SOYBEAN OIL\VITAMINS
     Dosage: 1 DF, 1X/DAY AFTER BREAKFAST
     Route: 048
     Dates: start: 20200617, end: 20200917

REACTIONS (1)
  - Weight increased [Not Recovered/Not Resolved]

NARRATIVE: CASE EVENT DATE: 2011
